FAERS Safety Report 7286395-2 (Version None)
Quarter: 2011Q1

REPORT INFORMATION
  Report Type: 
  Country: None (occurrence: None)
  Receive Date: 20110210
  Receipt Date: 20110207
  Transmission Date: 20110831
  Serious: Yes (Life-Threatening, Hospitalization)
  Sender: FDA-Public Use
  Company Number: GB-CEPHALON-2011000658

PATIENT
  Sex: Male
  Weight: 113 kg

DRUGS (11)
  1. GLICAZIDA [Concomitant]
  2. ALLOPURINOL [Concomitant]
  3. AUGMENTIN '125' [Concomitant]
     Dates: start: 20110107, end: 20110111
  4. BISOPROLOL [Concomitant]
  5. LERCANIDIPINE [Concomitant]
  6. BENDAMUSTINE HCL [Suspect]
     Route: 042
     Dates: start: 20101101
  7. ASPIRIN [Concomitant]
  8. RAMIPRIL [Concomitant]
  9. RITUXIMAB [Suspect]
     Route: 042
     Dates: start: 20101101
  10. SIMVASTATIN [Concomitant]
  11. METACLOPRAMIDE [Concomitant]

REACTIONS (2)
  - PNEUMONITIS [None]
  - INFECTION [None]
